FAERS Safety Report 9989298 (Version 2)
Quarter: 2013Q4

REPORT INFORMATION
  Report Type: Spontaneous
  Country: BR (occurrence: None)
  Receive Date: 20131024
  Receipt Date: 20131121
  Transmission Date: 20140711
  Serious: Yes (Other)
  Sender: FDA-Public Use
  Company Number: 2013SA097192

PATIENT
  Age: 37 Year
  Sex: Male

DRUGS (1)
  1. FABRAZYME [Suspect]
     Indication: FABRY^S DISEASE
     Dosage: (NOT OTHERWISE SPECIFIED)
     Route: 042
     Dates: start: 200804

REACTIONS (5)
  - Herpes zoster [None]
  - Cough [None]
  - Back pain [None]
  - Sensation of pressure [None]
  - Immune system disorder [None]
